FAERS Safety Report 5341634-X (Version None)
Quarter: 2007Q2

REPORT INFORMATION
  Report Type: 
  Country: None (occurrence: None)
  Receive Date: 20070529
  Receipt Date: 20070529
  Transmission Date: 20071010
  Serious: Yes (Other)
  Sender: FDA-Public Use
  Company Number: None

PATIENT
  Sex: Female

DRUGS (2)
  1. LYRICA [Suspect]
     Indication: NEUROPATHY
     Dosage: 75 MG ONE TIME HS X 7, ONE TIME BID PO
     Route: 048
  2. LYRICA [Suspect]
     Indication: PAIN
     Dosage: 75 MG ONE TIME HS X 7, ONE TIME BID PO
     Route: 048

REACTIONS (2)
  - FALL [None]
  - HYPERSOMNIA [None]
